FAERS Safety Report 20651918 (Version 1)
Quarter: 2022Q1

REPORT INFORMATION
  Report Type: Spontaneous
  Country: US (occurrence: US)
  Receive Date: 20220330
  Receipt Date: 20220330
  Transmission Date: 20220423
  Serious: No
  Sender: FDA-Public Use
  Company Number: US-ELI_LILLY_AND_COMPANY-US202203012012

PATIENT
  Sex: Female

DRUGS (1)
  1. TALTZ [Suspect]
     Active Substance: IXEKIZUMAB
     Indication: Product used for unknown indication
     Dosage: UNK UNK, UNKNOWN
     Route: 065

REACTIONS (9)
  - Erythema [Unknown]
  - Weight bearing difficulty [Unknown]
  - Rash [Unknown]
  - Peripheral swelling [Unknown]
  - Blister [Unknown]
  - Arthritis [Unknown]
  - Rash [Unknown]
  - Pain in extremity [Unknown]
  - Psoriasis [Unknown]
